FAERS Safety Report 9795621 (Version 1)
Quarter: 2014Q1

REPORT INFORMATION
  Report Type: Spontaneous
  Country: US (occurrence: US)
  Receive Date: 20140103
  Receipt Date: 20140103
  Transmission Date: 20141002
  Serious: No
  Sender: FDA-Public Use
  Company Number: US-PFIZER INC-2013373259

PATIENT
  Sex: Female

DRUGS (2)
  1. RAPAMUNE [Suspect]
     Dosage: 28 MG, 1X/DAY
  2. PHENOBARBITAL [Interacting]
     Indication: CONVULSION
     Dosage: UNK

REACTIONS (2)
  - Drug interaction [Unknown]
  - Immunosuppressant drug level decreased [Unknown]
